FAERS Safety Report 5948457-9 (Version None)
Quarter: 2008Q4

REPORT INFORMATION
  Report Type: 
  Country: None (occurrence: None)
  Receive Date: 20081111
  Receipt Date: 20081031
  Transmission Date: 20090506
  Serious: Yes (Life-Threatening)
  Sender: FDA-Public Use
  Company Number: GB-JNJFOC-20081100679

PATIENT
  Age: 14 Year
  Sex: Female
  Weight: 43 kg

DRUGS (6)
  1. INFLIXIMAB [Suspect]
     Indication: COLITIS
     Route: 042
  2. HYDROCORTISONE [Suspect]
     Route: 042
  3. HYDROCORTISONE [Suspect]
     Indication: COLITIS
     Route: 042
  4. CEFOTAXIME SODIUM [Concomitant]
  5. MESALAMINE [Concomitant]
  6. METRONIDAZOLE [Concomitant]

REACTIONS (4)
  - CONVULSION [None]
  - DRUG INEFFECTIVE [None]
  - INTESTINAL DILATATION [None]
  - REVERSIBLE POSTERIOR LEUKOENCEPHALOPATHY SYNDROME [None]
